FAERS Safety Report 4875698-4 (Version None)
Quarter: 2006Q1

REPORT INFORMATION
  Report Type: 
  Country: None (occurrence: None)
  Receive Date: 20060105
  Receipt Date: 20051222
  Transmission Date: 20060701
  Serious: Yes (Other)
  Sender: FDA-Public Use
  Company Number: MAG-2005-0000414

PATIENT
  Age: 85 Year
  Sex: Male

DRUGS (9)
  1. THEOPHYLLINE [Suspect]
     Dosage: 400 MG, DAILY, ORAL
     Route: 048
     Dates: start: 20051214, end: 20051220
  2. TULOBUTEROL (TULOBUTEROL) [Concomitant]
  3. MINOCYCLINE HYDROCHLORIDE [Concomitant]
  4. FUROSEMIDE [Concomitant]
  5. TICLOPIDINE HCL [Concomitant]
  6. ALLOPURINOL [Concomitant]
  7. NICORANDIL (NICORANDIL) [Concomitant]
  8. APRINIDINE HYDROCHLORIDE (APRINIDINE HYDROCHLORIDE) [Concomitant]
  9. ATORVASTATIN CLACIUM (ATORVASTATIN CALCIUM) [Concomitant]

REACTIONS (1)
  - RHABDOMYOLYSIS [None]
